FAERS Safety Report 13483524 (Version 1)
Quarter: 2017Q2

REPORT INFORMATION
  Report Type: Spontaneous
  Country: US (occurrence: US)
  Receive Date: 20170425
  Receipt Date: 20170425
  Transmission Date: 20170830
  Serious: Yes (Disabling)
  Sender: FDA-Public Use
  Company Number: None

PATIENT
  Age: 26 Year
  Sex: Female
  Weight: 99.88 kg

DRUGS (1)
  1. NEXPLANON [Suspect]
     Active Substance: ETONOGESTREL

REACTIONS (15)
  - Procedural pain [None]
  - Hypoaesthesia [None]
  - Alopecia [None]
  - Movement disorder [None]
  - Pain [None]
  - Headache [None]
  - Dyspareunia [None]
  - Dizziness [None]
  - Mental impairment [None]
  - Weight increased [None]
  - Abdominal pain [None]
  - Feeling abnormal [None]
  - Back pain [None]
  - Renal disorder [None]
  - Bipolar disorder [None]

NARRATIVE: CASE EVENT DATE: 20170424
